FAERS Safety Report 12572655 (Version 1)
Quarter: 2016Q3

REPORT INFORMATION
  Report Type: Spontaneous
  Country: US (occurrence: US)
  Receive Date: 20160720
  Receipt Date: 20160720
  Transmission Date: 20161109
  Serious: No
  Sender: FDA-Public Use
  Company Number: US-ASTRAZENECA-2016SE59992

PATIENT
  Sex: Female
  Weight: 43.5 kg

DRUGS (9)
  1. LISINOPRIL. [Suspect]
     Active Substance: LISINOPRIL
     Indication: BLOOD PRESSURE ABNORMAL
     Route: 048
  2. VITAMIN C [Concomitant]
     Active Substance: ASCORBIC ACID
     Indication: ILL-DEFINED DISORDER
     Route: 048
  3. BRILINTA [Suspect]
     Active Substance: TICAGRELOR
     Indication: STENT PLACEMENT
     Route: 048
     Dates: start: 20160523
  4. HAIR SKIN AND NAILS [Concomitant]
     Indication: ONYCHOCLASIS
     Route: 048
  5. LORAZEPAM. [Concomitant]
     Active Substance: LORAZEPAM
     Indication: ANXIETY
     Route: 048
  6. COQ10 [Concomitant]
     Active Substance: UBIDECARENONE
     Indication: CARDIAC DISORDER
     Route: 048
  7. ASPRIRN [Concomitant]
     Indication: ILL-DEFINED DISORDER
     Route: 048
     Dates: start: 20160523
  8. B12 COMPLEX [Concomitant]
     Indication: SUPPLEMENTATION THERAPY
     Route: 048
  9. IRON PILL [Concomitant]
     Active Substance: IRON
     Indication: HAEMORRHAGE
     Route: 048

REACTIONS (6)
  - Asthenia [Unknown]
  - Mouth swelling [Unknown]
  - Swollen tongue [Unknown]
  - Dyspnoea [Unknown]
  - Paraesthesia [Unknown]
  - Pharyngeal oedema [Unknown]
